FAERS Safety Report 5367748-6 (Version None)
Quarter: 2007Q2

REPORT INFORMATION
  Report Type: 
  Country: None (occurrence: None)
  Receive Date: 20070622
  Receipt Date: 20070523
  Transmission Date: 20071010
  Serious: No
  Sender: FDA-Public Use
  Company Number: US-ASTRAZENECA-2007UW05770

PATIENT
  Age: 21876 Day
  Sex: Male
  Weight: 104.5 kg

DRUGS (8)
  1. PULMICORT [Suspect]
     Indication: ASTHMA
     Route: 055
  2. ALBUTEROL [Concomitant]
     Indication: ASTHMA
     Dosage: 2 PUFFS QID
  3. COZAAR [Concomitant]
     Indication: HYPERTENSION
     Route: 048
  4. LIPITOR [Concomitant]
     Indication: HYPERLIPIDAEMIA
  5. NORVASC [Concomitant]
     Indication: HYPERTENSION
     Dosage: 2.5 / 500 MG
     Route: 048
  6. GLYBURIDE W/METFORMIN HYDROCHLORIDE [Concomitant]
     Indication: DIABETES MELLITUS
  7. HYDROCHLOROTHIAZIDE [Concomitant]
     Indication: HYPERTENSION
  8. ZOLOFT [Concomitant]
     Indication: DEPRESSION

REACTIONS (1)
  - CHEST PAIN [None]
